FAERS Safety Report 13513094 (Version 15)
Quarter: 2021Q4

REPORT INFORMATION
  Report Type: Spontaneous
  Country: CL (occurrence: CL)
  Receive Date: 20170504
  Receipt Date: 20211220
  Transmission Date: 20220304
  Serious: Yes (Hospitalization, Other)
  Sender: FDA-Public Use
  Company Number: CL-BIOMARINAP-CL-2017-113866

PATIENT
  Age: 8 Year
  Sex: Male
  Weight: 19.7 kg

DRUGS (2)
  1. ALDURAZYME [Suspect]
     Active Substance: LARONIDASE
     Indication: Mucopolysaccharidosis I
     Dosage: 11.6 MILLIGRAM, QW
     Route: 041
  2. ALDURAZYME [Suspect]
     Active Substance: LARONIDASE
     Dosage: 11.6 MILLIGRAM, QW
     Route: 041

REACTIONS (15)
  - Mitral valve incompetence [Unknown]
  - Hypertension [Unknown]
  - Tachycardia [Unknown]
  - Hyperhidrosis [Unknown]
  - Fatigue [Unknown]
  - Cervical cord compression [Not Recovered/Not Resolved]
  - Paraesthesia [Not Recovered/Not Resolved]
  - Carpal tunnel syndrome [Not Recovered/Not Resolved]
  - Pain in extremity [Not Recovered/Not Resolved]
  - Intervertebral disc protrusion [Recovering/Resolving]
  - Ear infection [Unknown]
  - Influenza [Unknown]
  - Diarrhoea [Unknown]
  - Nausea [Unknown]
  - Therapy interrupted [Unknown]

NARRATIVE: CASE EVENT DATE: 20170330
